FAERS Safety Report 4530990-8 (Version None)
Quarter: 2004Q4

REPORT INFORMATION
  Report Type: 
  Country: None (occurrence: None)
  Receive Date: 20041202
  Receipt Date: 20041012
  Transmission Date: 20050328
  Serious: No
  Sender: FDA-Public Use
  Company Number: 200420828BWH

PATIENT
  Age: 37 Year
  Sex: Male

DRUGS (3)
  1. LEVITRA [Suspect]
     Indication: ERECTILE DYSFUNCTION
     Dosage: 10 MG, TIW, ORAL
     Route: 048
     Dates: start: 20040801
  2. ALLEGRA [Concomitant]
  3. CIALIS [Concomitant]

REACTIONS (2)
  - NASAL CONGESTION [None]
  - PAIN IN JAW [None]
